FAERS Safety Report 19259499 (Version 10)
Quarter: 2023Q4

REPORT INFORMATION
  Report Type: Spontaneous
  Country: US (occurrence: US)
  Receive Date: 20210514
  Receipt Date: 20231129
  Transmission Date: 20240110
  Serious: No
  Sender: FDA-Public Use
  Company Number: US-PFIZER INC-2021231864

PATIENT
  Age: 82 Year
  Sex: Female

DRUGS (7)
  1. IBRANCE [Suspect]
     Active Substance: PALBOCICLIB
     Dosage: 125 MG
  2. IBRANCE [Suspect]
     Active Substance: PALBOCICLIB
     Dosage: 100 MG
  3. IBRANCE [Suspect]
     Active Substance: PALBOCICLIB
     Dosage: 14 DAYS FOLLOWED BY 14 DAYS OFF
     Route: 048
  4. IBRANCE [Suspect]
     Active Substance: PALBOCICLIB
     Dosage: 14 DAYS ON AND 21 DAYS OFF
     Dates: start: 202204
  5. IBRANCE [Suspect]
     Active Substance: PALBOCICLIB
     Dosage: TAKE ONE TABLET ONCE DAILY TAKEN WITH OR WITHOUT FOOD FOR 14 DAYS FOLLOWED BY 21 DAYS OFF TREATMENT
     Route: 048
  6. IBRANCE [Suspect]
     Active Substance: PALBOCICLIB
     Dosage: 75 MG, CYCLIC (2 WEEKS ON AND 2 WEEKS OFF)
  7. IBRANCE [Suspect]
     Active Substance: PALBOCICLIB
     Dosage: 75 MG DAILY FOR 14 DAYS, 21 DAYS OFF
     Route: 048

REACTIONS (4)
  - Neoplasm progression [Unknown]
  - Laboratory test abnormal [Unknown]
  - Full blood count decreased [Unknown]
  - Off label use [Unknown]
